FAERS Safety Report 4314930-2 (Version None)
Quarter: 2004Q1

REPORT INFORMATION
  Report Type: 
  Country: None (occurrence: None)
  Receive Date: 20040309
  Receipt Date: 20040224
  Transmission Date: 20041129
  Serious: Yes (Hospitalization)
  Sender: FDA-Public Use
  Company Number: US-JNJFOC-20040205999

PATIENT
  Age: 46 Year
  Sex: Female

DRUGS (7)
  1. INFLIXIMAB (INFLIXIMAB, RECOMBINANT) LYOPHILIZED POWDER [Suspect]
     Indication: RHEUMATOID ARTHRITIS
     Dosage: INTRAVENOUS;   INTRAVENOUS
     Route: 042
     Dates: start: 20020620, end: 20020620
  2. METHOTREXATE [Concomitant]
  3. EFFEXOR [Concomitant]
  4. PREMARIN [Concomitant]
  5. TYLENOL [Concomitant]
  6. ADVIL [Concomitant]
  7. HYDROCODONE (HYDROCODONE) [Concomitant]

REACTIONS (1)
  - DIVERTICULITIS [None]
